FAERS Safety Report 9733954 (Version 2)
Quarter: 2014Q1

REPORT INFORMATION
  Report Type: Spontaneous
  Country: CN (occurrence: CN)
  Receive Date: 20131205
  Receipt Date: 20140328
  Transmission Date: 20141002
  Serious: Yes (Other)
  Sender: FDA-Public Use
  Company Number: ALCN2013CN006005

PATIENT
  Sex: Male

DRUGS (2)
  1. TRAVATAN [Suspect]
     Indication: GLAUCOMA
     Dosage: 1 DF, UNK
     Route: 047
  2. RIFAMPICIN [Concomitant]
     Indication: TRACHOMA
     Dosage: 1 DF, UNK
     Route: 047
     Dates: start: 2013

REACTIONS (2)
  - Trachoma [Unknown]
  - Intraocular pressure increased [Recovered/Resolved]
